FAERS Safety Report 22114565 (Version 6)
Quarter: 2023Q2

REPORT INFORMATION
  Report Type: Spontaneous
  Country: US (occurrence: US)
  Receive Date: 20230320
  Receipt Date: 20230630
  Transmission Date: 20230722
  Serious: No
  Sender: FDA-Public Use
  Company Number: US-GLAXOSMITHKLINE-US2023039742

PATIENT
  Age: 82 Year
  Sex: Female

DRUGS (4)
  1. ZEJULA [Suspect]
     Active Substance: NIRAPARIB
     Indication: Ovarian cancer
     Dosage: 200 MG, QD
     Route: 048
     Dates: start: 20230302
  2. ZEJULA [Suspect]
     Active Substance: NIRAPARIB
     Dosage: 100 MG, QD
     Route: 048
  3. ZEJULA [Suspect]
     Active Substance: NIRAPARIB
     Dosage: 100 MG, QD
  4. ZEJULA [Suspect]
     Active Substance: NIRAPARIB
     Dosage: 100 MG, QD
     Route: 048

REACTIONS (15)
  - Red blood cell count decreased [Not Recovered/Not Resolved]
  - Platelet count decreased [Recovering/Resolving]
  - White blood cell count decreased [Unknown]
  - Feeling abnormal [Unknown]
  - Condition aggravated [Unknown]
  - Asthenia [Recovering/Resolving]
  - Blood pressure increased [Unknown]
  - Laboratory test abnormal [Unknown]
  - Abdominal distension [Unknown]
  - Abdominal pain upper [Unknown]
  - Dry mouth [Unknown]
  - Pollakiuria [Unknown]
  - Frequent bowel movements [Unknown]
  - Asthenia [Unknown]
  - Red blood cell count decreased [Unknown]

NARRATIVE: CASE EVENT DATE: 20230301
